FAERS Safety Report 20081518 (Version 19)
Quarter: 2022Q4

REPORT INFORMATION
  Report Type: Report from Study
  Country: KR (occurrence: None)
  Receive Date: 20211117
  Receipt Date: 20221214
  Transmission Date: 20230113
  Serious: Yes (Life-Threatening, Hospitalization)
  Sender: FDA-Public Use
  Company Number: KR-ROCHE-2957127

PATIENT
  Age: 40 Year
  Sex: Male
  Weight: 76.1 kg

DRUGS (47)
  1. COBIMETINIB [Suspect]
     Active Substance: COBIMETINIB
     Indication: Malignant melanoma
     Dosage: START DATE OF MOST RECENT DOSE OF STUDY DRUG PRIOR TO SAE 07/OCT/2021 AT 09:02 AM (20 MG)?ON 12/OCT/
     Route: 048
     Dates: start: 20211005
  2. COBIMETINIB [Suspect]
     Active Substance: COBIMETINIB
     Route: 048
     Dates: start: 20211013
  3. MINOCIN [Concomitant]
     Active Substance: MINOCYCLINE HYDROCHLORIDE
     Indication: Dermatitis acneiform
     Route: 048
     Dates: start: 20211012, end: 20211018
  4. MINOCIN [Concomitant]
     Active Substance: MINOCYCLINE HYDROCHLORIDE
     Route: 048
     Dates: start: 20211019, end: 20211111
  5. CEFAZOLIN [Concomitant]
     Active Substance: CEFAZOLIN
     Indication: Dermatitis acneiform
     Route: 042
     Dates: start: 20211017, end: 20211017
  6. CEFAZOLIN [Concomitant]
     Active Substance: CEFAZOLIN
     Indication: Rash maculo-papular
  7. MEPERIDINE HYDROCHLORIDE [Concomitant]
     Active Substance: MEPERIDINE HYDROCHLORIDE
     Indication: Dermatitis acneiform
     Route: 042
     Dates: start: 20211017, end: 20211017
  8. MEPERIDINE HYDROCHLORIDE [Concomitant]
     Active Substance: MEPERIDINE HYDROCHLORIDE
     Indication: Rash maculo-papular
  9. TRAMOL (SOUTH KOREA) [Concomitant]
     Indication: Dermatitis acneiform
     Route: 048
     Dates: start: 20211017, end: 20211017
  10. DURICEF [Concomitant]
     Active Substance: CEFADROXIL
     Indication: Dermatitis acneiform
     Route: 048
     Dates: start: 20211018, end: 20211018
  11. DURICEF [Concomitant]
     Active Substance: CEFADROXIL
     Indication: Rash maculo-papular
  12. ESROBAN [Concomitant]
     Indication: Dermatitis acneiform
     Route: 061
     Dates: start: 20211017, end: 20211111
  13. PREDNISOLONE [Concomitant]
     Active Substance: PREDNISOLONE
     Indication: Dermatitis acneiform
     Route: 048
     Dates: start: 20211018, end: 20211024
  14. PREDNISOLONE [Concomitant]
     Active Substance: PREDNISOLONE
     Indication: Rash maculo-papular
     Route: 048
     Dates: start: 20211025, end: 20211031
  15. PREDNISOLONE [Concomitant]
     Active Substance: PREDNISOLONE
     Indication: Stevens-Johnson syndrome
     Route: 048
     Dates: start: 20211102, end: 20211104
  16. PREDNISOLONE [Concomitant]
     Active Substance: PREDNISOLONE
     Route: 048
     Dates: start: 20211105, end: 20211111
  17. PREDNISOLONE [Concomitant]
     Active Substance: PREDNISOLONE
     Route: 048
     Dates: start: 20211105, end: 20211107
  18. XYZAL [Concomitant]
     Active Substance: LEVOCETIRIZINE DIHYDROCHLORIDE
     Indication: Dermatitis acneiform
     Route: 048
     Dates: start: 20211018, end: 20211110
  19. XYZAL [Concomitant]
     Active Substance: LEVOCETIRIZINE DIHYDROCHLORIDE
     Dates: start: 20211111, end: 20211118
  20. DESOWEN [Concomitant]
     Active Substance: DESONIDE
     Indication: Rash maculo-papular
     Route: 061
     Dates: start: 20211012, end: 20211128
  21. DESOWEN [Concomitant]
     Active Substance: DESONIDE
     Indication: Toxic epidermal necrolysis
     Route: 061
     Dates: start: 20211112
  22. A PREXA [Concomitant]
     Indication: Nausea
     Route: 048
     Dates: start: 20211012, end: 20211015
  23. ATIVAN [Concomitant]
     Active Substance: LORAZEPAM
     Indication: Abdominal pain upper
     Route: 048
     Dates: start: 20211012, end: 20211015
  24. DIHYDROCODEINE [Concomitant]
     Active Substance: DIHYDROCODEINE
     Indication: Cough
     Route: 048
     Dates: start: 20210426, end: 20211111
  25. NUCYNTA ER [Concomitant]
     Active Substance: TAPENTADOL HYDROCHLORIDE
     Indication: Back pain
     Route: 048
     Dates: start: 20210906, end: 20211111
  26. MUCOPECT TAB [Concomitant]
     Indication: Productive cough
     Route: 048
     Dates: start: 20210906, end: 20211111
  27. ACECLOFENAC [Concomitant]
     Active Substance: ACECLOFENAC
     Indication: Back pain
     Route: 048
     Dates: start: 20210918, end: 20211111
  28. FEBUXOSTAT [Concomitant]
     Active Substance: FEBUXOSTAT
     Indication: Gout
     Route: 048
     Dates: start: 20210913, end: 20211111
  29. COLCHICINE [Concomitant]
     Active Substance: COLCHICINE
     Indication: Gout
     Route: 048
     Dates: start: 20210913, end: 20211111
  30. MAGO (SOUTH KOREA) [Concomitant]
     Indication: Constipation
     Route: 048
     Dates: start: 20210901, end: 20211111
  31. PEMBROLIZUMAB [Concomitant]
     Active Substance: PEMBROLIZUMAB
     Dates: start: 20210406, end: 20210809
  32. TRAMADOL HYDROCHLORIDE [Concomitant]
     Active Substance: TRAMADOL HYDROCHLORIDE
     Dates: start: 20211111, end: 20211116
  33. ALLEGRA [Concomitant]
     Active Substance: FEXOFENADINE HYDROCHLORIDE
     Indication: Toxic epidermal necrolysis
     Route: 048
     Dates: start: 20211113, end: 20211115
  34. HEXAMEDIN [Concomitant]
  35. DEXAMETHASONE [Concomitant]
     Active Substance: DEXAMETHASONE
     Indication: Stevens-Johnson syndrome
     Dates: start: 20211112, end: 20211128
  36. ESROBAN [Concomitant]
     Indication: Toxic epidermal necrolysis
     Route: 061
     Dates: start: 20211112
  37. METHYLPREDNISOLONE ACEPONATE [Concomitant]
     Active Substance: METHYLPREDNISOLONE ACEPONATE
     Indication: Toxic epidermal necrolysis
     Route: 061
     Dates: start: 20211112
  38. MUPIROCIN [Concomitant]
     Active Substance: MUPIROCIN
  39. VASELIN [Concomitant]
     Indication: Stevens-Johnson syndrome
  40. TRANEXAMIC ACID [Concomitant]
     Active Substance: TRANEXAMIC ACID
     Indication: Haemoptysis
     Route: 048
     Dates: start: 20211126
  41. ERDOSTEINE [Concomitant]
     Active Substance: ERDOSTEINE
     Indication: Productive cough
     Route: 048
     Dates: start: 20211128
  42. APIDRA SOLOSTAR [Concomitant]
     Active Substance: INSULIN GLULISINE
     Indication: Hyperglycaemia
     Route: 058
     Dates: start: 20211126, end: 20211126
  43. APIDRA SOLOSTAR [Concomitant]
     Active Substance: INSULIN GLULISINE
     Route: 058
     Dates: start: 20211127, end: 20211127
  44. APIDRA SOLOSTAR [Concomitant]
     Active Substance: INSULIN GLULISINE
     Route: 058
     Dates: start: 20211128, end: 20211201
  45. APIDRA SOLOSTAR [Concomitant]
     Active Substance: INSULIN GLULISINE
     Route: 058
     Dates: start: 20211201
  46. LANTUS SOLOSTAR [Concomitant]
     Active Substance: INSULIN GLARGINE
     Indication: Hyperglycaemia
     Route: 058
     Dates: start: 20211129
  47. RESTASIS [Concomitant]
     Active Substance: CYCLOSPORINE
     Indication: Toxic epidermal necrolysis
     Route: 031
     Dates: start: 20211115

REACTIONS (3)
  - Toxic epidermal necrolysis [Recovered/Resolved]
  - Rash maculo-papular [Recovered/Resolved]
  - Stevens-Johnson syndrome [Recovered/Resolved]

NARRATIVE: CASE EVENT DATE: 20211008
